FAERS Safety Report 16289740 (Version 1)
Quarter: 2019Q2

REPORT INFORMATION
  Report Type: Spontaneous
  Country: US (occurrence: US)
  Receive Date: 20190404
  Receipt Date: 20190404
  Transmission Date: 20190711
  Serious: No
  Sender: FDA-Public Use
  Company Number: None

PATIENT

DRUGS (2)
  1. CHLORPROMAZINE HCL [Suspect]
     Active Substance: CHLORPROMAZINE HYDROCHLORIDE
  2. CLOMIPRAMINE HCL [Suspect]
     Active Substance: CLOMIPRAMINE

REACTIONS (2)
  - Wrong product administered [None]
  - Product dispensing error [None]
